FAERS Safety Report 19237677 (Version 1)
Quarter: 2021Q2

REPORT INFORMATION
  Report Type: Spontaneous
  Country: US (occurrence: US)
  Receive Date: 20210510
  Receipt Date: 20210510
  Transmission Date: 20210717
  Serious: Yes (Other)
  Sender: FDA-Public Use
  Company Number: US-PFIZER INC-2021486872

PATIENT
  Age: 62 Year
  Sex: Female

DRUGS (7)
  1. TAMOXIFEN [Suspect]
     Active Substance: TAMOXIFEN
     Indication: METASTASES TO BONE
     Dosage: UNK
  2. DIBROMODULCITOL [Suspect]
     Active Substance: MITOLACTOL
     Indication: NEOPLASM MALIGNANT
     Dosage: UNK
  3. VINCRISTINE SULFATE. [Suspect]
     Active Substance: VINCRISTINE SULFATE
     Indication: NEOPLASM MALIGNANT
     Dosage: UNK
  4. DOXORUBICIN HCL [Suspect]
     Active Substance: DOXORUBICIN HYDROCHLORIDE
     Indication: NEOPLASM MALIGNANT
     Dosage: UNK
  5. HALOTESTIN [Suspect]
     Active Substance: FLUOXYMESTERONE
     Indication: NEOPLASM MALIGNANT
     Dosage: UNK
  6. CALCIUM FOLINATE [Suspect]
     Active Substance: LEUCOVORIN CALCIUM
     Indication: NEOPLASM MALIGNANT
     Dosage: UNK
  7. METHOTREXATE SODIUM. [Suspect]
     Active Substance: METHOTREXATE SODIUM
     Indication: NEOPLASM MALIGNANT
     Dosage: UNK

REACTIONS (2)
  - Disease recurrence [Unknown]
  - Tumour lysis syndrome [Unknown]
